FAERS Safety Report 10670255 (Version 5)
Quarter: 2015Q4

REPORT INFORMATION
  Report Type: Report from Study
  Country: US (occurrence: US)
  Receive Date: 20141223
  Receipt Date: 20151116
  Transmission Date: 20160304
  Serious: Yes (Death)
  Sender: FDA-Public Use
  Company Number: US-BIOGENIDEC-2014BI131172

PATIENT
  Age: 33 Year
  Sex: Male
  Weight: 77 kg

DRUGS (13)
  1. NUVIGIL [Concomitant]
     Active Substance: ARMODAFINIL
     Indication: FATIGUE
     Route: 048
     Dates: start: 2012
  2. TECFIDERA [Suspect]
     Active Substance: DIMETHYL FUMARATE
     Indication: MULTIPLE SCLEROSIS
     Route: 048
     Dates: start: 20140808, end: 20141205
  3. DIAZEPAM. [Concomitant]
     Active Substance: DIAZEPAM
     Indication: DEPRESSION
     Route: 048
  4. LEXAPRO [Concomitant]
     Active Substance: ESCITALOPRAM OXALATE
     Indication: DEPRESSION
     Route: 048
     Dates: start: 201405
  5. GABAPENTIN. [Concomitant]
     Active Substance: GABAPENTIN
     Indication: NEURALGIA
     Route: 048
     Dates: start: 2012
  6. OXYCODONE HYDROCHLORIDE. [Concomitant]
     Active Substance: OXYCODONE HYDROCHLORIDE
     Indication: NEURALGIA
     Route: 048
     Dates: start: 2012
  7. SOMA [Concomitant]
     Active Substance: CARISOPRODOL
     Indication: INSOMNIA
     Route: 048
     Dates: start: 201406
  8. TIZANIDINE. [Concomitant]
     Active Substance: TIZANIDINE
     Indication: MUSCLE SPASTICITY
     Route: 048
     Dates: start: 2012
  9. DIAZEPAM. [Concomitant]
     Active Substance: DIAZEPAM
     Indication: DEPRESSION
     Route: 048
     Dates: start: 201205
  10. DIAZEPAM. [Concomitant]
     Active Substance: DIAZEPAM
     Indication: ANXIETY
     Route: 048
  11. TECFIDERA [Suspect]
     Active Substance: DIMETHYL FUMARATE
     Indication: MULTIPLE SCLEROSIS
     Route: 048
     Dates: start: 20140801, end: 20140807
  12. DIAZEPAM. [Concomitant]
     Active Substance: DIAZEPAM
     Indication: ANXIETY
     Route: 048
     Dates: start: 201205
  13. OXYCODONE HYDROCHLORIDE. [Concomitant]
     Active Substance: OXYCODONE HYDROCHLORIDE
     Indication: PAIN
     Route: 048
     Dates: start: 2012

REACTIONS (1)
  - Toxicity to various agents [Fatal]

NARRATIVE: CASE EVENT DATE: 20141205
